FAERS Safety Report 7950554-3 (Version None)
Quarter: 2011Q4

REPORT INFORMATION
  Report Type: 
  Country: None (occurrence: None)
  Receive Date: 20111130
  Receipt Date: 20111118
  Transmission Date: 20120403
  Serious: Yes (Life-Threatening, Hospitalization)
  Sender: FDA-Public Use
  Company Number: FR-ROCHE-758994

PATIENT
  Sex: Male
  Weight: 61 kg

DRUGS (2)
  1. MIRCERA [Suspect]
     Indication: NEPHROGENIC ANAEMIA
     Route: 042
  2. MIRCERA [Suspect]
     Route: 042

REACTIONS (3)
  - GASTRIC ULCER [None]
  - MYOCARDIAL INFARCTION [None]
  - HAEMOGLOBIN ABNORMAL [None]
